FAERS Safety Report 4325984-1 (Version None)
Quarter: 2004Q1

REPORT INFORMATION
  Report Type: 
  Country: None (occurrence: None)
  Receive Date: 20040329
  Receipt Date: 20040316
  Transmission Date: 20041129
  Serious: Yes (Death)
  Sender: FDA-Public Use
  Company Number: GB-GLAXOSMITHKLINE-B0326954A

PATIENT
  Age: 71 Year
  Sex: Male

DRUGS (1)
  1. SEROXAT [Suspect]
     Indication: ANXIETY
     Dosage: 20MG PER DAY
     Route: 048
     Dates: start: 20000413, end: 20000901

REACTIONS (2)
  - ANXIETY [None]
  - SUDDEN DEATH [None]
